FAERS Safety Report 11741386 (Version 3)
Quarter: 2016Q1

REPORT INFORMATION
  Report Type: Spontaneous
  Country: JP (occurrence: JP)
  Receive Date: 20151116
  Receipt Date: 20160226
  Transmission Date: 20160525
  Serious: Yes (Hospitalization)
  Sender: FDA-Public Use
  Company Number: JP-009507513-1511JPN005186

PATIENT
  Age: 43 Year
  Sex: Male
  Weight: 81 kg

DRUGS (6)
  1. MUCOSTA [Concomitant]
     Active Substance: REBAMIPIDE
     Indication: CHRONIC GASTRITIS
     Dosage: 2 DF, DAILY, DIVIDED DOSE FREQUENCY UNKNOWN
     Route: 048
     Dates: start: 20150911, end: 20151204
  2. PROTECADIN [Concomitant]
     Active Substance: LAFUTIDINE
     Indication: CHRONIC GASTRITIS
     Dosage: 10 MG, DAILY, DIVIDED DOSE FREQUENCY UNKNOWN
     Route: 048
     Dates: start: 20150911, end: 20151204
  3. URSO [Concomitant]
     Active Substance: URSODIOL
     Indication: HEPATITIS C
     Dosage: 600 MG, DAILY, DIVIDED DOSE FREQUENCY UNKNOWN
     Route: 048
     Dates: start: 20150414, end: 20151204
  4. SOVALDI [Suspect]
     Active Substance: SOFOSBUVIR
     Indication: HEPATITIS C
     Dosage: 1 TABLET DAILY, DIVIDED DOSE FREQUENCY UNKNOWN
     Route: 048
     Dates: start: 20150911, end: 20151204
  5. BEZATOL SR [Concomitant]
     Active Substance: BEZAFIBRATE
     Indication: HYPERLIPIDAEMIA
     Dosage: 2 DF, DAILY, DIVIDED DOSE FREQUENCY UNKNOWN
     Route: 048
     Dates: start: 20151002, end: 20151204
  6. REBETOL [Suspect]
     Active Substance: RIBAVIRIN
     Indication: HEPATITIS C
     Dosage: 1000 MG, DAILY, DIVIDED DOSE FREQUENCY UNKNOWN
     Route: 048
     Dates: start: 20150911, end: 20151204

REACTIONS (1)
  - Emotional distress [Recovering/Resolving]

NARRATIVE: CASE EVENT DATE: 20151102
